FAERS Safety Report 21951858 (Version 4)
Quarter: 2023Q1

REPORT INFORMATION
  Report Type: Spontaneous
  Country: US (occurrence: US)
  Receive Date: 20230203
  Receipt Date: 20230314
  Transmission Date: 20230418
  Serious: Yes (Life-Threatening, Hospitalization, Disabling, Other)
  Sender: FDA-Public Use
  Company Number: US-PFIZER INC-202300049787

PATIENT
  Age: 50 Year
  Sex: Female
  Weight: 63.96 kg

DRUGS (10)
  1. XELJANZ [Suspect]
     Active Substance: TOFACITINIB CITRATE
     Indication: Colitis ulcerative
     Dosage: 5 MG, 2X/DAY (5MG IN THE MORNING AND 5MG AT NIGHT)
     Dates: start: 2019, end: 202101
  2. XELJANZ [Suspect]
     Active Substance: TOFACITINIB CITRATE
     Indication: Alopecia
     Dosage: 5 MG, 2X/DAY
     Route: 048
     Dates: start: 20230202
  3. XELJANZ [Suspect]
     Active Substance: TOFACITINIB CITRATE
     Indication: Rheumatoid arthritis
  4. METHOTREXATE SODIUM [Concomitant]
     Active Substance: METHOTREXATE SODIUM
     Indication: Rheumatoid arthritis
     Dosage: UNK, WEEKLY(6 PILLS, UNKNOWN MG, ONCE A WEEK)
     Dates: start: 202012, end: 202012
  5. METHOTREXATE SODIUM [Concomitant]
     Active Substance: METHOTREXATE SODIUM
     Indication: Systemic lupus erythematosus
  6. METHOTREXATE SODIUM [Concomitant]
     Active Substance: METHOTREXATE SODIUM
     Indication: Alopecia
  7. BENLYSTA [Concomitant]
     Active Substance: BELIMUMAB
     Indication: Systemic lupus erythematosus
     Dosage: EVERY FOUR WEEKS
  8. BENLYSTA [Concomitant]
     Active Substance: BELIMUMAB
     Indication: Lupus nephritis
  9. DECADRON [Concomitant]
     Active Substance: DEXAMETHASONE
     Dosage: EVERY FOUR WEEKS
  10. SOLU-MEDROL [Concomitant]
     Active Substance: METHYLPREDNISOLONE SODIUM SUCCINATE
     Dosage: EVERY FOUR WEEKS

REACTIONS (27)
  - Immunosuppression [Unknown]
  - Infection [Unknown]
  - Clostridium difficile infection [Not Recovered/Not Resolved]
  - Neutropenia [Unknown]
  - Pulmonary embolism [Unknown]
  - Phlebitis [Unknown]
  - Thrombosis [Unknown]
  - Impaired gastric emptying [Unknown]
  - Pancreatic disorder [Unknown]
  - Intestinal prolapse [Unknown]
  - Sepsis [Unknown]
  - Pyelonephritis [Unknown]
  - Escherichia infection [Unknown]
  - Proteus infection [Not Recovered/Not Resolved]
  - Kidney infection [Unknown]
  - Neutrophil count decreased [Unknown]
  - Urinary tract infection [Unknown]
  - Mental disorder [Unknown]
  - Feeling abnormal [Not Recovered/Not Resolved]
  - Vascular pseudoaneurysm [Unknown]
  - Cystitis interstitial [Unknown]
  - Dysphagia [Unknown]
  - White blood cell count decreased [Unknown]
  - Therapeutic response unexpected [Unknown]
  - Fatigue [Unknown]
  - Hepatic enzyme increased [Unknown]
  - Inflammatory marker increased [Unknown]

NARRATIVE: CASE EVENT DATE: 20201201
